FAERS Safety Report 4654357-7 (Version None)
Quarter: 2005Q2

REPORT INFORMATION
  Report Type: 
  Country: None (occurrence: None)
  Receive Date: 20050404
  Receipt Date: 20041227
  Transmission Date: 20051028
  Serious: No
  Sender: FDA-Public Use
  Company Number: USA041286988

PATIENT
  Age: 32 Year
  Sex: Male
  Weight: 107 kg

DRUGS (2)
  1. CYMBALTA [Suspect]
     Indication: DEPRESSION
     Dates: start: 20041221
  2. XANAX (ALPRAZOLAM DUM) [Concomitant]

REACTIONS (5)
  - CONSTIPATION [None]
  - DIARRHOEA [None]
  - FEELING ABNORMAL [None]
  - NAUSEA [None]
  - SOMNOLENCE [None]
